FAERS Safety Report 10230576 (Version 1)
Quarter: 2014Q2

REPORT INFORMATION
  Report Type: Spontaneous
  Country: US (occurrence: None)
  Receive Date: 20140610
  Receipt Date: 20140610
  Transmission Date: 20141212
  Serious: Yes (Disabling)
  Sender: FDA-Public Use
  Company Number: None

PATIENT
  Age: 61 Year
  Sex: Female
  Weight: 58.97 kg

DRUGS (1)
  1. TOPROL XL - GENERIC FOR 25 MG WOCKHARDT [Suspect]
     Indication: CARDIAC FAILURE CONGESTIVE
     Dosage: 1 AND 1/2 PILL DAILY  ONCE DAILY TAKEN BY MOUTH
     Route: 048
     Dates: start: 20140219, end: 20140604

REACTIONS (3)
  - Product substitution issue [None]
  - Cardiac failure congestive [None]
  - Condition aggravated [None]
